FAERS Safety Report 10101470 (Version 1)
Quarter: 2014Q2

REPORT INFORMATION
  Report Type: Spontaneous
  Country: DE (occurrence: None)
  Receive Date: 20140422
  Receipt Date: 20140422
  Transmission Date: 20141212
  Serious: Yes (Other)
  Sender: FDA-Public Use
  Company Number: AUR-APL-2014-04733

PATIENT
  Age: 72 Year
  Sex: Male

DRUGS (5)
  1. RAMIPRIL (RAMIPRIL) [Suspect]
     Indication: PRODUCT USED FOR UNKNOWN INDICATION
  2. INSPRA [Suspect]
     Indication: PRODUCT USED FOR UNKNOWN INDICATION
     Dates: start: 2012
  3. HYDROCHLOROTHIAZIDE (HYDROCHLOROTHIAZIDE) [Concomitant]
     Indication: PRODUCT USED FOR UNKNOWN INDICATION
  4. DIGITOXIN (DIGITOXIN) [Concomitant]
  5. METOPROLOL (METOPROLOL) [Concomitant]

REACTIONS (2)
  - Cheyne-Stokes respiration [None]
  - Sleep disorder [None]
